FAERS Safety Report 9911870 (Version 2)
Quarter: 2014Q1

REPORT INFORMATION
  Report Type: Spontaneous
  Country: US (occurrence: US)
  Receive Date: 20140219
  Receipt Date: 20140219
  Transmission Date: 20141002
  Serious: No
  Sender: FDA-Public Use
  Company Number: US-MYLANLABS-2013S1012035

PATIENT
  Age: 38 Year
  Sex: Female

DRUGS (1)
  1. EPIPEN [Suspect]
     Indication: FOOD ALLERGY
     Dosage: UNK

REACTIONS (1)
  - Contusion [Not Recovered/Not Resolved]
